FAERS Safety Report 11752186 (Version 2)
Quarter: 2016Q1

REPORT INFORMATION
  Report Type: Spontaneous
  Country: FR (occurrence: FR)
  Receive Date: 20151118
  Receipt Date: 20160129
  Transmission Date: 20160525
  Serious: Yes (Hospitalization, Other)
  Sender: FDA-Public Use
  Company Number: FR-GILEAD-2015-0182587

PATIENT
  Age: 83 Year
  Sex: Male
  Weight: 58 kg

DRUGS (5)
  1. EPREX [Suspect]
     Active Substance: ERYTHROPOIETIN
     Indication: PRODUCT USED FOR UNKNOWN INDICATION
     Dosage: 1 DF, Q1WK
     Route: 065
     Dates: start: 201409
  2. ZYDELIG [Suspect]
     Active Substance: IDELALISIB
     Dosage: 100 MG, BID
     Route: 065
     Dates: start: 20151112
  3. ZYDELIG [Suspect]
     Active Substance: IDELALISIB
     Indication: B-CELL LYMPHOMA
     Dosage: 150 MG, BID
     Route: 065
     Dates: start: 201409, end: 201511
  4. PERMIXON [Suspect]
     Active Substance: SAW PALMETTO
     Indication: PROSTATIC ADENOMA
     Dosage: 1 DF, QD
     Route: 048
  5. AUGMENTIN [Suspect]
     Active Substance: AMOXICILLIN\CLAVULANATE POTASSIUM
     Indication: BRONCHIOLITIS
     Dosage: 3 G, QD
     Route: 048
     Dates: start: 20151027, end: 20151106

REACTIONS (4)
  - Dehydration [Unknown]
  - Renal failure [Unknown]
  - Diarrhoea [Recovered/Resolved]
  - Off label use [Unknown]

NARRATIVE: CASE EVENT DATE: 20151106
